FAERS Safety Report 7347714-1 (Version None)
Quarter: 2011Q1

REPORT INFORMATION
  Report Type: 
  Country: None (occurrence: None)
  Receive Date: 20110311
  Receipt Date: 20110304
  Transmission Date: 20110831
  Serious: Yes (Hospitalization)
  Sender: FDA-Public Use
  Company Number: B0704385A

PATIENT
  Sex: Male
  Weight: 63 kg

DRUGS (17)
  1. CICLOSPORIN [Concomitant]
     Indication: IMMUNOSUPPRESSION
     Dosage: 135MG PER DAY
     Route: 065
     Dates: start: 20081005, end: 20081204
  2. BIOFERMIN R [Concomitant]
     Dosage: 3IUAX PER DAY
     Route: 048
     Dates: start: 20081001, end: 20081216
  3. MEYLON [Concomitant]
     Dosage: 4IUAX PER DAY
     Route: 042
     Dates: start: 20081005, end: 20081006
  4. ALKERAN [Suspect]
     Indication: CORD BLOOD TRANSPLANT THERAPY
     Dosage: 80MGM2 PER DAY
     Route: 042
     Dates: start: 20081006, end: 20081006
  5. FUNGIZONE [Concomitant]
     Route: 002
     Dates: start: 20081001, end: 20081230
  6. ISODINE GARGLE [Concomitant]
     Route: 002
     Dates: start: 20081001, end: 20081015
  7. FLUDARA [Suspect]
     Indication: CORD BLOOD TRANSPLANT THERAPY
     Dosage: 25MGM2 PER DAY
     Route: 042
     Dates: start: 20081001, end: 20081005
  8. DIFLUCAN [Concomitant]
     Dosage: 200MG PER DAY
     Route: 048
     Dates: start: 20081001, end: 20081107
  9. BEZATOL SR [Concomitant]
     Dosage: 200MG PER DAY
     Route: 048
     Dates: start: 20080929, end: 20081007
  10. OMEPRAL [Concomitant]
     Dosage: 20MG PER DAY
     Route: 048
     Dates: start: 20081003
  11. KYTRIL [Concomitant]
     Dosage: 1IUAX PER DAY
     Route: 042
     Dates: start: 20081001, end: 20081006
  12. ZOVIRAX [Concomitant]
     Dosage: 600MG PER DAY
     Route: 048
     Dates: start: 20081001, end: 20081212
  13. UNKNOWN DRUG [Concomitant]
     Dosage: 1IUAX PER DAY
     Route: 042
     Dates: start: 20081002, end: 20081011
  14. BARACLUDE [Concomitant]
     Dosage: .5MG PER DAY
     Route: 048
     Dates: start: 20080929
  15. CRAVIT [Concomitant]
     Dosage: 300MG PER DAY
     Route: 048
     Dates: start: 20081001, end: 20081013
  16. URSO 250 [Concomitant]
     Dosage: 600MG PER DAY
     Route: 048
     Dates: start: 20081001
  17. SOLDEM 3A [Concomitant]
     Route: 042
     Dates: start: 20081005, end: 20081013

REACTIONS (2)
  - C-REACTIVE PROTEIN INCREASED [None]
  - SEPSIS [None]
